FAERS Safety Report 9137669 (Version 2)
Quarter: 2013Q2

REPORT INFORMATION
  Report Type: Spontaneous
  Country: PL (occurrence: PL)
  Receive Date: 20130304
  Receipt Date: 20130412
  Transmission Date: 20140414
  Serious: Yes (Death, Other)
  Sender: FDA-Public Use
  Company Number: PL-PFIZER INC-2013070882

PATIENT
  Age: 33 Year
  Sex: Female

DRUGS (4)
  1. CISPLATIN [Suspect]
     Indication: LYMPHOMA
     Dosage: 100 MG/M2; 4 TIMES OVER 4 CONSECUTIVE DAYS (THROUGH A 22-H I.V. INFUSION)
     Route: 042
  2. ETOPOSIDE [Concomitant]
     Indication: LYMPHOMA
     Dosage: 63.2 MG (40 MG/M2) 1-4
     Route: 042
  3. METHYLPREDNISOLONE [Concomitant]
     Indication: LYMPHOMA
     Dosage: 790 MG (500 MG/M2) 1-4
     Route: 042
  4. CYTARABINE [Concomitant]
     Indication: LYMPHOMA
     Dosage: 3.16 (2 G/M2) DAY 5
     Route: 042

REACTIONS (19)
  - Overdose [Fatal]
  - Sepsis [Fatal]
  - Cardiac arrest [Fatal]
  - Thrombocytopenia [Unknown]
  - Respiratory failure [Not Recovered/Not Resolved]
  - Haemorrhagic diathesis [Not Recovered/Not Resolved]
  - Cardiomyopathy [Not Recovered/Not Resolved]
  - Supraventricular tachycardia [Not Recovered/Not Resolved]
  - Agranulocytosis [Unknown]
  - Atrial fibrillation [Not Recovered/Not Resolved]
  - Deafness bilateral [Not Recovered/Not Resolved]
  - Hepatic failure [Not Recovered/Not Resolved]
  - Renal failure [Not Recovered/Not Resolved]
  - Anaemia [Unknown]
  - Back pain [Unknown]
  - Asthenia [Unknown]
  - Swelling face [Unknown]
  - Vomiting [Not Recovered/Not Resolved]
  - Nausea [Not Recovered/Not Resolved]
